FAERS Safety Report 7770372-9 (Version None)
Quarter: 2011Q3

REPORT INFORMATION
  Report Type: 
  Country: None (occurrence: None)
  Receive Date: 20110922
  Receipt Date: 20100816
  Transmission Date: 20111222
  Serious: No
  Sender: FDA-Public Use
  Company Number: US-ASTRAZENECA-2010SE38431

PATIENT
  Age: 48 Year
  Sex: Female

DRUGS (1)
  1. SEROQUEL [Suspect]
     Indication: SLEEP DISORDER
     Route: 048
     Dates: start: 20100301

REACTIONS (6)
  - CHILLS [None]
  - FEELING HOT [None]
  - VOMITING [None]
  - HEADACHE [None]
  - DRUG DOSE OMISSION [None]
  - NAUSEA [None]
